FAERS Safety Report 21747183 (Version 1)
Quarter: 2022Q4

REPORT INFORMATION
  Report Type: Spontaneous
  Country: RU (occurrence: None)
  Receive Date: 20221219
  Receipt Date: 20221219
  Transmission Date: 20230113
  Serious: Yes (Hospitalization, Other)
  Sender: FDA-Public Use
  Company Number: RU-ROCHE-3244066

PATIENT
  Age: 56 Year

DRUGS (5)
  1. ATEZOLIZUMAB [Suspect]
     Active Substance: ATEZOLIZUMAB
     Indication: Non-small cell lung cancer
     Dosage: ON 24/MAR/2021 TO 26/MAY/2021, 4 CYCLES, JUN/2021 TO SEP/2021 CYCLES 5, DEC/2021, JAN/2022, MAR/2022
     Route: 041
     Dates: start: 20210323
  2. BEVACIZUMAB [Suspect]
     Active Substance: BEVACIZUMAB
     Indication: Non-small cell lung cancer
     Dosage: DOSE 7.5 MG/KG - 517 MG,?ON 24/MAR/2021 TO 26/MAY/2021, 4 CYCLES, JUN/2021 TO SEP/2021, BEVACIZUMAB
     Route: 041
     Dates: start: 20210323
  3. BEVACIZUMAB [Suspect]
     Active Substance: BEVACIZUMAB
     Dosage: DOSE 15 MG/KG - 1,140 MG,?ON SEP/2021 CYCLES 5, DEC/2021, JAN/2022, MAR/2022, BEVACIZUMAB SUBSEQUENT
     Route: 041
     Dates: start: 202109
  4. PACLITAXEL [Suspect]
     Active Substance: PACLITAXEL
     Indication: Non-small cell lung cancer
     Dosage: ON 24/MAR/2021 TO 26/MAY/2021, 4 CYCLES OF PCB, SUBSEQUENT DOSE WERE ADMINISTERED.
     Route: 065
     Dates: start: 20210323
  5. CARBOPLATIN [Suspect]
     Active Substance: CARBOPLATIN
     Indication: Non-small cell lung cancer
     Dosage: ON 24/MAR/2021 TO 26/MAY/2021, 4 CYCLES OF PCB, SUBSEQUENT DOSE WERE ADMINISTERED.
     Route: 065
     Dates: start: 20210323

REACTIONS (6)
  - Aortic arteriosclerosis [Unknown]
  - Pulmonary fibrosis [Unknown]
  - Cerebral atrophy [Unknown]
  - Cerebellar atrophy [Unknown]
  - Prostatitis [Unknown]
  - Paranasal cyst [Unknown]

NARRATIVE: CASE EVENT DATE: 20220722
